FAERS Safety Report 8007844-8 (Version None)
Quarter: 2011Q4

REPORT INFORMATION
  Report Type: 
  Country: None (occurrence: None)
  Receive Date: 20111222
  Receipt Date: 20111222
  Transmission Date: 20120403
  Serious: Yes (Hospitalization)
  Sender: FDA-Public Use
  Company Number: None

PATIENT
  Age: 77 Year
  Sex: Female
  Weight: 62.1428 kg

DRUGS (1)
  1. PROLIA [Suspect]
     Indication: OSTEOPOROSIS
     Dosage: 60 MG SHOT 6 MO
     Dates: start: 20111103

REACTIONS (10)
  - TOOTHACHE [None]
  - COUGH [None]
  - WHEEZING [None]
  - GINGIVAL PAIN [None]
  - LIP SWELLING [None]
  - RASH [None]
  - HEART RATE INCREASED [None]
  - BACK PAIN [None]
  - DYSPNOEA [None]
  - CYSTITIS [None]
